FAERS Safety Report 10956544 (Version 1)
Quarter: 2015Q1

REPORT INFORMATION
  Report Type: Spontaneous
  Country: US (occurrence: None)
  Receive Date: 20150226
  Receipt Date: 20150226
  Transmission Date: 20150721
  Serious: Yes (Hospitalization)
  Sender: FDA-Public Use
  Company Number: TPA2011A07530

PATIENT
  Age: 79 Year
  Sex: Female
  Weight: 68.04 kg

DRUGS (15)
  1. ALBUTEROL SULFATE (SALBUTAMOL) [Concomitant]
  2. ASPIRIN (ACETYLSALICYLIC ACID) [Concomitant]
     Active Substance: ASPIRIN
  3. ESOMEPRAZOLE MAGNESIUM (ESOMEPRAZOLE MAGNESIUM) [Concomitant]
     Active Substance: ESOMEPRAZOLE MAGNESIUM
  4. FUROSEMIDE. [Concomitant]
     Active Substance: FUROSEMIDE
  5. PROMETHAZINE HCL (PROMETHAZINE HYDROCHLORIDE) [Concomitant]
  6. UNK CHOLESTEROL MEDICATION (OTHER LIPID MODIFYING AGENTS) [Concomitant]
  7. GLYBURIDE (GLIBENCLAMIDE) [Suspect]
     Active Substance: GLYBURIDE
  8. PRAVASTATIN SODIUM. [Suspect]
     Active Substance: PRAVASTATIN SODIUM
  9. ATENOLOL. [Concomitant]
     Active Substance: ATENOLOL
  10. LOSARTAN POTASSIUM. [Suspect]
     Active Substance: LOSARTAN POTASSIUM
  11. ACTOS [Suspect]
     Active Substance: PIOGLITAZONE HYDROCHLORIDE
     Indication: TYPE 2 DIABETES MELLITUS
  12. AMLODIPINE BESYLATE (AMLODIPINE BESILATE) [Concomitant]
     Active Substance: AMLODIPINE BESYLATE
  13. BENZONATATE. [Concomitant]
     Active Substance: BENZONATATE
  14. UNK BLOOD PRESSURE MEDICATION (OTHER ANTIHYPERTENSIVES) [Concomitant]
  15. LORAZEPAM. [Suspect]
     Active Substance: LORAZEPAM

REACTIONS (2)
  - Abdominal pain upper [None]
  - Pollakiuria [None]
